FAERS Safety Report 21076252 (Version 2)
Quarter: 2022Q3

REPORT INFORMATION
  Report Type: Spontaneous
  Country: US (occurrence: US)
  Receive Date: 20220713
  Receipt Date: 20220912
  Transmission Date: 20221027
  Serious: No
  Sender: FDA-Public Use
  Company Number: US-MYOVANT SCIENCES GMBH-2022MYSCI0300714

PATIENT
  Sex: Male

DRUGS (1)
  1. ORGOVYX [Suspect]
     Active Substance: RELUGOLIX
     Indication: Prostate cancer
     Dosage: 120 MILLIGRAM, QD
     Route: 048

REACTIONS (6)
  - Hot flush [Not Recovered/Not Resolved]
  - Fatigue [Unknown]
  - Gynaecomastia [Unknown]
  - Depression [Unknown]
  - Asthenia [Unknown]
  - Incorrect dose administered [Not Recovered/Not Resolved]
